FAERS Safety Report 11553569 (Version 1)
Quarter: 2015Q3

REPORT INFORMATION
  Report Type: Spontaneous
  Country: US (occurrence: None)
  Receive Date: 20150924
  Receipt Date: 20150924
  Transmission Date: 20151125
  Serious: Yes (Hospitalization)
  Sender: FDA-Public Use
  Company Number: None

PATIENT
  Age: 41 Year
  Sex: Male
  Weight: 73.3 kg

DRUGS (15)
  1. TRAMADOL (ULTRAM) [Concomitant]
  2. SPIRONOLACTONE (ALDACTONE) [Concomitant]
  3. RECOMBIVAX [Concomitant]
  4. HARVONI [Suspect]
     Active Substance: LEDIPASVIR\SOFOSBUVIR
     Indication: HEPATITIS C
     Dosage: 90-400 MG
     Route: 048
     Dates: start: 20150411, end: 20150704
  5. LACTULOSE (CHRONULAC) [Concomitant]
  6. MAGNESIUM [Concomitant]
     Active Substance: MAGNESIUM
  7. LIDOCAINE (LIDOCAINE) [Concomitant]
     Active Substance: LIDOCAINE
  8. CARVEDILOL (COREG) [Concomitant]
  9. MAGNESIUM OXIDE (MAG-OX) [Concomitant]
  10. PENICILLIN [Concomitant]
     Active Substance: PENICILLIN
  11. COPEGUS [Suspect]
     Active Substance: RIBAVIRIN
     Indication: HEPATITIS C
     Route: 048
     Dates: start: 20150411, end: 20150603
  12. LASIX [Concomitant]
     Active Substance: FUROSEMIDE
  13. SODIUM CHLORIDE. [Concomitant]
     Active Substance: SODIUM CHLORIDE
  14. ZOFRAN [Concomitant]
     Active Substance: ONDANSETRON HYDROCHLORIDE
  15. OXYCODONE (OXY-IR) [Concomitant]

REACTIONS (9)
  - Umbilical hernia [None]
  - Condition aggravated [None]
  - Ileus [None]
  - Hyperkalaemia [None]
  - Anaemia [None]
  - Hyponatraemia [None]
  - Abdominal pain [None]
  - Acute kidney injury [None]
  - Gallbladder disorder [None]

NARRATIVE: CASE EVENT DATE: 20150529
